FAERS Safety Report 16410108 (Version 1)
Quarter: 2019Q2

REPORT INFORMATION
  Report Type: Other
  Country: ID (occurrence: ID)
  Receive Date: 20190610
  Receipt Date: 20190610
  Transmission Date: 20190711
  Serious: Yes (Other)
  Sender: FDA-Public Use
  Company Number: ID-PROVELL PHARMACEUTICALS-2067995

PATIENT
  Age: 37 Year
  Sex: Female

DRUGS (10)
  1. METHIMAZOLE. [Suspect]
     Active Substance: METHIMAZOLE
  2. METHIMAZOLE. [Suspect]
     Active Substance: METHIMAZOLE
     Dates: start: 2010
  3. METHIMAZOLE. [Suspect]
     Active Substance: METHIMAZOLE
     Dates: start: 201305
  4. EUTHYROX [Suspect]
     Active Substance: LEVOTHYROXINE SODIUM
     Indication: HYPOTHYROIDISM
  5. METHIMAZOLE. [Suspect]
     Active Substance: METHIMAZOLE
     Dates: start: 201304
  6. METHIMAZOLE. [Suspect]
     Active Substance: METHIMAZOLE
     Dates: end: 2011
  7. METHIMAZOLE. [Suspect]
     Active Substance: METHIMAZOLE
     Dates: start: 201308
  8. METHIMAZOLE. [Suspect]
     Active Substance: METHIMAZOLE
     Dates: start: 2013
  9. METHIMAZOLE. [Suspect]
     Active Substance: METHIMAZOLE
     Dates: start: 2013
  10. PROPYLTHIOURACIL. [Concomitant]
     Active Substance: PROPYLTHIOURACIL
     Dates: start: 201303, end: 201304

REACTIONS (6)
  - Maternal exposure during pregnancy [Recovered/Resolved]
  - Overdose [Recovered/Resolved]
  - Treatment noncompliance [None]
  - Hyperthyroidism [Not Recovered/Not Resolved]
  - Premature delivery [Recovered/Resolved]
  - Complication of pregnancy [Recovered/Resolved]

NARRATIVE: CASE EVENT DATE: 201304
